FAERS Safety Report 9115837 (Version 1)
Quarter: 2013Q1

REPORT INFORMATION
  Report Type: Spontaneous
  Country: CA (occurrence: CA)
  Receive Date: 20130224
  Receipt Date: 20130224
  Transmission Date: 20140127
  Serious: Yes (Hospitalization, Other)
  Sender: FDA-Public Use
  Company Number: CA-AMGEN-CANSP2012051558

PATIENT
  Age: 45 Year
  Sex: Male

DRUGS (12)
  1. ENBREL [Suspect]
     Indication: ANKYLOSING SPONDYLITIS
     Dosage: 50 MG, QWK
     Dates: start: 20120523
  2. RAMIPRIL [Concomitant]
     Dosage: UNK
  3. VITAMIN D /00107901/ [Concomitant]
     Dosage: UNK
  4. PLAVIX [Concomitant]
     Dosage: UNK
  5. MULTIVITAMIN                       /00097801/ [Concomitant]
     Dosage: UNK
  6. ATORVASTATIN [Concomitant]
     Dosage: UNK
  7. ALENDRONATE [Concomitant]
     Dosage: UNK
  8. SULFASALAZINE [Concomitant]
     Dosage: UNK
  9. CLOPIDOGREL [Concomitant]
     Dosage: UNK
  10. RENA-VITE [Concomitant]
     Dosage: UNK
  11. EPREX [Concomitant]
     Dosage: UNK UNK, QWK
  12. FUROSEMIDE [Concomitant]
     Dosage: UNK

REACTIONS (6)
  - Wound complication [Not Recovered/Not Resolved]
  - Skin swelling [Not Recovered/Not Resolved]
  - Fall [Unknown]
  - Limb injury [Unknown]
  - Laceration [Unknown]
  - Pain [Not Recovered/Not Resolved]
